FAERS Safety Report 11423274 (Version 2)
Quarter: 2015Q3

REPORT INFORMATION
  Report Type: Report from Study
  Country: US (occurrence: US)
  Receive Date: 20150827
  Receipt Date: 20150908
  Transmission Date: 20151125
  Serious: Yes (Other)
  Sender: FDA-Public Use
  Company Number: PHEH2015US016497

PATIENT
  Sex: Female
  Weight: 64.36 kg

DRUGS (7)
  1. GILENYA [Suspect]
     Active Substance: FINGOLIMOD HYDROCHLORIDE
     Dosage: 0.5 MG, QD
     Route: 048
     Dates: end: 201501
  2. TYLENOL [Concomitant]
     Active Substance: ACETAMINOPHEN
     Indication: PRODUCT USED FOR UNKNOWN INDICATION
     Route: 065
  3. BIOTIN [Concomitant]
     Active Substance: BIOTIN
     Indication: PRODUCT USED FOR UNKNOWN INDICATION
     Route: 065
  4. FOLIC ACID. [Concomitant]
     Active Substance: FOLIC ACID
     Indication: PRODUCT USED FOR UNKNOWN INDICATION
     Route: 065
  5. VITAMIN D3 [Concomitant]
     Active Substance: CHOLECALCIFEROL
     Indication: PRODUCT USED FOR UNKNOWN INDICATION
     Route: 065
  6. GILENYA [Suspect]
     Active Substance: FINGOLIMOD HYDROCHLORIDE
     Indication: MULTIPLE SCLEROSIS
     Dosage: 0.5 MG, QD
     Route: 048
     Dates: start: 201212, end: 2014
  7. VALACYCLOVIR [Concomitant]
     Active Substance: VALACYCLOVIR HYDROCHLORIDE
     Indication: PRODUCT USED FOR UNKNOWN INDICATION
     Route: 065

REACTIONS (18)
  - Weight increased [Unknown]
  - Myalgia [Unknown]
  - Mood swings [Unknown]
  - Stress [Unknown]
  - Vaginal discharge [Unknown]
  - Fatigue [Unknown]
  - Anxiety [Unknown]
  - Impulsive behaviour [Unknown]
  - Drug ineffective [Unknown]
  - Joint stiffness [Unknown]
  - Back pain [Unknown]
  - Fall [Unknown]
  - Neck pain [Unknown]
  - Increased tendency to bruise [Unknown]
  - Central nervous system lesion [Unknown]
  - Hemiparesis [Unknown]
  - Gait disturbance [Unknown]
  - Headache [Unknown]
